FAERS Safety Report 10156708 (Version 1)
Quarter: 2014Q2

REPORT INFORMATION
  Report Type: Spontaneous
  Country: CA (occurrence: None)
  Receive Date: 20140505
  Receipt Date: 20140505
  Transmission Date: 20141212
  Serious: Yes (Hospitalization)
  Sender: FDA-Public Use
  Company Number: FK201401528

PATIENT
  Age: 66 Year
  Sex: Female
  Weight: 66 kg

DRUGS (10)
  1. CEFAZOLIN FOR INJECTION, USP (CEFAZOLIN SODIUM) (CEFAZOLIN SODIUM) [Suspect]
     Indication: PRODUCT USED FOR UNKNOWN INDICATION
     Route: 042
  2. RAN-CIPROFLOXACIN (CIPROFLOXACIN HYDROCHLORIDE) (CIPROFLOXACIN HYDROCHLORIDE) [Suspect]
     Indication: PRODUCT USED FOR UNKNOWN INDICATION
     Route: 048
  3. ADVAIR 250 DISKUS (SERETIDE) (SERETIDE) [Concomitant]
  4. FRAGMIN (DALTEPARIN SODIUM) (DALTEPARIN SODIUM) [Concomitant]
  5. PEG 3350 (COLYTE) [Concomitant]
  6. RANITIDINE (RANITIDINE) (RANITIDINE) [Concomitant]
  7. SPIRIVA [Concomitant]
  8. TEARS NATURALE (DEXTRAN) (DEXTRAN) [Concomitant]
  9. THIAMINE HCL INJECTION (THIAMINE HYDROCHLORIDE) (THIAMINE HYDROCHLORIDE) [Concomitant]
  10. TOTAL PARENTERAL HUTRITION (PARENTERAL) [Concomitant]

REACTIONS (2)
  - Stevens-Johnson syndrome [None]
  - Toxic epidermal necrolysis [None]
